FAERS Safety Report 12161173 (Version 4)
Quarter: 2016Q2

REPORT INFORMATION
  Report Type: Report from Study
  Country: US (occurrence: US)
  Receive Date: 20160308
  Receipt Date: 20160627
  Transmission Date: 20160815
  Serious: Yes (Hospitalization)
  Sender: FDA-Public Use
  Company Number: US-ACTELION-A-NJ2016-131582

PATIENT
  Age: 27 Year
  Sex: Female

DRUGS (2)
  1. REVATIO [Concomitant]
     Active Substance: SILDENAFIL CITRATE
  2. VELETRI [Suspect]
     Active Substance: EPOPROSTENOL
     Indication: PULMONARY ARTERIAL HYPERTENSION
     Dosage: 11 NG/KG, PER MIN
     Route: 042
     Dates: start: 20160111

REACTIONS (12)
  - Sepsis [Unknown]
  - Tachycardia [Unknown]
  - Headache [Unknown]
  - Catheter site inflammation [Unknown]
  - Bacteraemia [Unknown]
  - Back pain [Not Recovered/Not Resolved]
  - Chest pain [Unknown]
  - Pain in jaw [Unknown]
  - Pneumonia [Unknown]
  - Device dislocation [Unknown]
  - Catheter site pruritus [Unknown]
  - Cough [Unknown]
